FAERS Safety Report 15287742 (Version 1)
Quarter: 2018Q3

REPORT INFORMATION
  Report Type: Spontaneous
  Country: IT (occurrence: IT)
  Receive Date: 20180817
  Receipt Date: 20180817
  Transmission Date: 20181010
  Serious: Yes (Other)
  Sender: FDA-Public Use
  Company Number: IT-TEVA-2018-IT-942969

PATIENT
  Age: 32 Year
  Sex: Male

DRUGS (6)
  1. BENTELAN [Concomitant]
     Active Substance: BETAMETHASONE SODIUM PHOSPHATE
     Route: 065
     Dates: start: 20171120
  2. FRISTAMIN [Concomitant]
     Active Substance: LORATADINE
     Route: 065
     Dates: start: 20171101, end: 20171201
  3. FRISTAMIN [Concomitant]
     Active Substance: LORATADINE
     Route: 065
     Dates: start: 20170110, end: 201712
  4. LEVOCETIRIZINE [Suspect]
     Active Substance: LEVOCETIRIZINE
     Indication: HYPERSENSITIVITY
     Dosage: 5 MILLIGRAM DAILY;
     Route: 048
     Dates: start: 20170901, end: 20171120
  5. FRISTAMIN [Concomitant]
     Active Substance: LORATADINE
     Dosage: .25 DOSAGE FORMS DAILY;
     Route: 065
     Dates: start: 20171215
  6. FRISTAMIN [Concomitant]
     Active Substance: LORATADINE
     Route: 065
     Dates: start: 20170901, end: 2017

REACTIONS (4)
  - Urticaria [Not Recovered/Not Resolved]
  - Pruritus generalised [Not Recovered/Not Resolved]
  - Weight increased [Unknown]
  - Skin warm [Not Recovered/Not Resolved]

NARRATIVE: CASE EVENT DATE: 20171122
